FAERS Safety Report 8600756-8 (Version None)
Quarter: 2012Q3

REPORT INFORMATION
  Report Type: 
  Country: None (occurrence: None)
  Receive Date: 20120806
  Receipt Date: 20120724
  Transmission Date: 20120928
  Serious: Yes (Other)
  Sender: FDA-Public Use
  Company Number: GER/ UKI/ 12/0025162

PATIENT
  Age: 66 Year
  Sex: Male
  Weight: 95.25 kg

DRUGS (9)
  1. ATORVASTATIN [Suspect]
     Indication: PRODUCT USED FOR UNKNOWN INDICATION
     Dates: start: 20120316
  2. CORACTEN (NIFEDIPINE) [Concomitant]
  3. OMEPRAZOLE [Concomitant]
  4. FLUOXETINE [Concomitant]
  5. SYMBICORT [Concomitant]
  6. CIALIS [Concomitant]
  7. DILTIAZEM HYDROCHLORIDE [Concomitant]
  8. ROSUVASTATIN [Concomitant]
  9. LOSARTAN POTASSIUM [Concomitant]

REACTIONS (1)
  - SUICIDAL IDEATION [None]
